FAERS Safety Report 13234387 (Version 1)
Quarter: 2017Q1

REPORT INFORMATION
  Report Type: Spontaneous
  Country: US (occurrence: US)
  Receive Date: 20170214
  Receipt Date: 20170214
  Transmission Date: 20170428
  Serious: Yes (Disabling)
  Sender: FDA-Public Use
  Company Number: None

PATIENT
  Age: 78 Year
  Sex: Female
  Weight: 63.56 kg

DRUGS (18)
  1. GABAPENTIN. [Concomitant]
     Active Substance: GABAPENTIN
  2. T3/T4 THYROID HORMONES [Concomitant]
     Active Substance: LEVOTHYROXINE\LIOTHYRONINE
  3. METHENAMINE HIPPURATE. [Suspect]
     Active Substance: METHENAMINE HIPPURATE
     Indication: URINARY TRACT INFECTION
     Route: 048
     Dates: start: 20161107
  4. TRAMADOL. [Concomitant]
     Active Substance: TRAMADOL
  5. LIPITOR [Concomitant]
     Active Substance: ATORVASTATIN CALCIUM
  6. DIPENHYDRMINE [Concomitant]
  7. PROGESTERONE. [Concomitant]
     Active Substance: PROGESTERONE
  8. LOPERAMIDE [Concomitant]
     Active Substance: LOPERAMIDE
  9. CYMBALTA [Concomitant]
     Active Substance: DULOXETINE HYDROCHLORIDE
  10. SOTALOL. [Concomitant]
     Active Substance: SOTALOL
  11. IVIG [Concomitant]
     Active Substance: HUMAN IMMUNOGLOBULIN G
  12. ACETAMETYPHINE [Concomitant]
  13. BACTRIM [Suspect]
     Active Substance: SULFAMETHOXAZOLE\TRIMETHOPRIM
     Indication: PRODUCT USED FOR UNKNOWN INDICATION
     Dosage: 800, 160 MG TO 1 PILL
  14. PREDISONE [Suspect]
     Active Substance: PREDNISONE
  15. CENTRUM SILVER [Concomitant]
     Active Substance: MINERALS\VITAMINS
  16. XARELTO [Concomitant]
     Active Substance: RIVAROXABAN
  17. LUTEIN ESTERS [Concomitant]
  18. BIEST CREAM [Concomitant]

REACTIONS (3)
  - Dizziness [None]
  - Nausea [None]
  - Headache [None]

NARRATIVE: CASE EVENT DATE: 20161111
